FAERS Safety Report 7922598-9 (Version None)
Quarter: 2011Q4

REPORT INFORMATION
  Report Type: 
  Country: None (occurrence: None)
  Receive Date: 20111117
  Receipt Date: 20101227
  Transmission Date: 20120403
  Serious: No
  Sender: FDA-Public Use
  Company Number: US-ALLERGAN-1016737US

PATIENT
  Age: 89 Year
  Sex: Female

DRUGS (2)
  1. LUMIGAN [Concomitant]
     Indication: INTRAOCULAR PRESSURE TEST
     Dosage: 1 GTT, QHS
     Route: 047
  2. COMBIGAN [Suspect]
     Indication: INTRAOCULAR PRESSURE TEST
     Dosage: 1 GBQ, BID
     Route: 047
     Dates: start: 20101201

REACTIONS (1)
  - EYE IRRITATION [None]
